FAERS Safety Report 23587415 (Version 1)
Quarter: 2024Q1

REPORT INFORMATION
  Report Type: Spontaneous
  Country: CN (occurrence: CN)
  Receive Date: 20240301
  Receipt Date: 20240301
  Transmission Date: 20240410
  Serious: Yes (Other)
  Sender: FDA-Public Use
  Company Number: CN-PFIZER INC-PV202400028380

PATIENT
  Age: 40 Year
  Sex: Male
  Weight: 51 kg

DRUGS (2)
  1. CYTARABINE [Suspect]
     Active Substance: CYTARABINE
     Dosage: 1.5 G, 1X/DAY
     Route: 041
     Dates: start: 20240222, end: 20240222
  2. SODIUM CHLORIDE [Concomitant]
     Active Substance: SODIUM CHLORIDE
     Indication: Vehicle solution use
     Dosage: 250 ML, 1X/DAY
     Route: 041
     Dates: start: 20240222, end: 20240222

REACTIONS (4)
  - Face oedema [Recovering/Resolving]
  - Pain in extremity [Recovering/Resolving]
  - Flushing [Recovering/Resolving]
  - Blood calcium decreased [Unknown]

NARRATIVE: CASE EVENT DATE: 20240223
